FAERS Safety Report 6296364-7 (Version None)
Quarter: 2009Q3

REPORT INFORMATION
  Report Type: 
  Country: None (occurrence: None)
  Receive Date: 20090804
  Receipt Date: 20090728
  Transmission Date: 20100115
  Serious: Yes (Other)
  Sender: FDA-Public Use
  Company Number: PHHY2009DE30583

PATIENT
  Age: 45 Year
  Sex: Female

DRUGS (1)
  1. DIOVAN [Suspect]
     Indication: HYPERTENSION
     Dosage: 160 MG, UNK
     Dates: start: 20040101

REACTIONS (3)
  - ARTHRITIS [None]
  - ARTHROPATHY [None]
  - OSTEOARTHRITIS [None]
